FAERS Safety Report 10196984 (Version 2)
Quarter: 2014Q2

REPORT INFORMATION
  Report Type: Report from Study
  Country: US (occurrence: US)
  Receive Date: 20140527
  Receipt Date: 20140613
  Transmission Date: 20141212
  Serious: Yes (Hospitalization)
  Sender: FDA-Public Use
  Company Number: US-009507513-1405USA011056

PATIENT
  Age: 50 Year
  Sex: Male
  Weight: 80.8 kg

DRUGS (3)
  1. VORINOSTAT [Suspect]
     Indication: ACUTE MYELOID LEUKAEMIA
     Dosage: 500 MG, TID (DAYS 1-3), CYCLE:1, CYCLE: 28DAYS
     Route: 048
     Dates: start: 20140429, end: 20140501
  2. CYTARABINE [Suspect]
     Indication: ACUTE MYELOID LEUKAEMIA
     Dosage: 1500 MG/M2/DAY ON DAYS 4-7, CYCLE:1, CYCLE: 28DAYS
     Route: 042
     Dates: start: 20140502, end: 20140506
  3. IDARUBICIN [Suspect]
     Indication: ACUTE MYELOID LEUKAEMIA
     Dosage: 12 MG/M2/DAY OVER 15MIN ON DAYS 4-6, CYCLE: 28 DAYS, CYCLE: 1
     Route: 042
     Dates: start: 20140502, end: 20140504

REACTIONS (2)
  - Hypoxia [Recovering/Resolving]
  - Sinus tachycardia [Recovering/Resolving]
